FAERS Safety Report 11219798 (Version 1)
Quarter: 2015Q2

REPORT INFORMATION
  Report Type: Spontaneous
  Country: US (occurrence: US)
  Receive Date: 20150625
  Receipt Date: 20150625
  Transmission Date: 20150821
  Serious: Yes (Other)
  Sender: FDA-Public Use
  Company Number: US-JNJFOC-20150618960

PATIENT

DRUGS (1)
  1. IMBRUVICA [Suspect]
     Active Substance: IBRUTINIB
     Indication: PRODUCT USED FOR UNKNOWN INDICATION

REACTIONS (1)
  - Gastrointestinal haemorrhage [Unknown]
